FAERS Safety Report 4851143-X (Version None)
Quarter: 2005Q4

REPORT INFORMATION
  Report Type: 
  Country: None (occurrence: None)
  Receive Date: 20051212
  Receipt Date: 20050714
  Transmission Date: 20060501
  Serious: Yes (Death)
  Sender: FDA-Public Use
  Company Number: US-BRISTOL-MYERS SQUIBB COMPANY-13039292

PATIENT
  Age: 61 Year
  Sex: Male

DRUGS (4)
  1. MEGACE [Suspect]
     Indication: ANOREXIA
     Route: 048
     Dates: start: 20050504, end: 20050504
  2. PHENERGAN [Concomitant]
  3. PERCOCET [Concomitant]
  4. ATENOLOL [Concomitant]

REACTIONS (1)
  - MALIGNANT NEOPLASM PROGRESSION [None]
